FAERS Safety Report 25949310 (Version 1)
Quarter: 2025Q4

REPORT INFORMATION
  Report Type: Spontaneous
  Country: US (occurrence: US)
  Receive Date: 20251022
  Receipt Date: 20251022
  Transmission Date: 20260118
  Serious: Yes (Other)
  Sender: NOVARTIS
  Company Number: US-002147023-NVSC2025US159636

PATIENT
  Age: 42 Year
  Sex: Male

DRUGS (1)
  1. KESIMPTA [Suspect]
     Active Substance: OFATUMUMAB
     Indication: Multiple sclerosis
     Dosage: 4 MG, QW (AMPOULE)
     Route: 003
     Dates: start: 20251010, end: 20251010

REACTIONS (6)
  - Gait inability [Recovered/Resolved]
  - Fatigue [Recovered/Resolved]
  - Feeling of body temperature change [Recovered/Resolved]
  - Tremor [Recovered/Resolved]
  - Polyuria [Recovered/Resolved]
  - Multiple sclerosis relapse [Recovered/Resolved]

NARRATIVE: CASE EVENT DATE: 20251010
